FAERS Safety Report 14166027 (Version 2)
Quarter: 2017Q4

REPORT INFORMATION
  Report Type: Report from Study
  Country: None (occurrence: CO)
  Receive Date: 20171107
  Receipt Date: 20171110
  Transmission Date: 20180321
  Serious: Yes (Death)
  Sender: FDA-Public Use
  Company Number: CO-ABBVIE-17K-036-2156207-00

PATIENT
  Age: 89 Year
  Sex: Male

DRUGS (1)
  1. HUMIRA [Suspect]
     Active Substance: ADALIMUMAB
     Indication: PSORIASIS
     Route: 058
     Dates: start: 20141010, end: 20170103

REACTIONS (1)
  - Death [Fatal]

NARRATIVE: CASE EVENT DATE: 20171015
